FAERS Safety Report 24063748 (Version 1)
Quarter: 2024Q3

REPORT INFORMATION
  Report Type: Spontaneous
  Country: US (occurrence: None)
  Receive Date: 20240709
  Receipt Date: 20240709
  Transmission Date: 20241016
  Serious: No
  Sender: BANNER
  Company Number: US-PTA-005617

PATIENT

DRUGS (1)
  1. NAPROXEN [Suspect]
     Active Substance: NAPROXEN
     Route: 048

REACTIONS (1)
  - Wrong technique in product usage process [Unknown]
